FAERS Safety Report 7004661-2 (Version None)
Quarter: 2010Q3

REPORT INFORMATION
  Report Type: 
  Country: None (occurrence: None)
  Receive Date: 20100921
  Receipt Date: 20100909
  Transmission Date: 20110219
  Serious: Yes (Other)
  Sender: FDA-Public Use
  Company Number: FR-BAYER-201039323GPV

PATIENT
  Age: 74 Year
  Sex: Male

DRUGS (5)
  1. NEXAVAR [Suspect]
     Indication: HEPATIC NEOPLASM MALIGNANT
     Dosage: TOTAL DAILY DOSE: 800 MG
     Route: 048
     Dates: start: 20100630, end: 20100719
  2. PLAVIX [Concomitant]
  3. TAHOR [Concomitant]
  4. TRIVASTAL [Concomitant]
  5. MECIR [Concomitant]

REACTIONS (6)
  - BURNING SENSATION [None]
  - DERMATITIS BULLOUS [None]
  - EYELID OEDEMA [None]
  - NASAL MUCOSAL DISORDER [None]
  - PALMAR-PLANTAR ERYTHRODYSAESTHESIA SYNDROME [None]
  - RHINALGIA [None]
